FAERS Safety Report 26134458 (Version 2)
Quarter: 2025Q4

REPORT INFORMATION
  Report Type: Report from Study
  Country: JP (occurrence: JP)
  Receive Date: 20251209
  Receipt Date: 20251224
  Transmission Date: 20260118
  Serious: Yes (Hospitalization)
  Sender: GILEAD
  Company Number: JP-CMIC-GS-JP-569-6813-00034-00003

PATIENT
  Age: 29 Year
  Sex: Female
  Weight: 50.7 kg

DRUGS (25)
  1. SACITUZUMAB GOVITECAN-HZIY [Suspect]
     Active Substance: SACITUZUMAB GOVITECAN-HZIY
     Indication: Triple negative breast cancer
     Dosage: 520 MG
     Route: 041
     Dates: start: 20250627, end: 20250627
  2. SACITUZUMAB GOVITECAN-HZIY [Suspect]
     Active Substance: SACITUZUMAB GOVITECAN-HZIY
     Dosage: 400 MG
     Route: 041
     Dates: start: 20250717, end: 20250717
  3. SACITUZUMAB GOVITECAN-HZIY [Suspect]
     Active Substance: SACITUZUMAB GOVITECAN-HZIY
     Dosage: 380 MG
     Route: 041
     Dates: start: 20250724, end: 20250814
  4. OLAPARIB [Concomitant]
     Active Substance: OLAPARIB
     Indication: Triple negative breast cancer
     Dosage: UNK
     Dates: start: 20250206, end: 20250616
  5. FILGRASTIM [Concomitant]
     Active Substance: FILGRASTIM
     Indication: Triple negative breast cancer
     Dosage: 150 UG
     Dates: start: 20250710, end: 20250710
  6. PEGFILGRASTIM [Concomitant]
     Active Substance: PEGFILGRASTIM
     Indication: Prophylaxis
     Dosage: 3.6 MG
     Dates: start: 20250724, end: 20250814
  7. PALONOSETRON HYDROCHLORIDE [Concomitant]
     Active Substance: PALONOSETRON HYDROCHLORIDE
     Indication: Prophylaxis
     Dosage: 0.75 MG
     Route: 042
     Dates: start: 20250627, end: 20250814
  8. DEXAMETHASONE [Concomitant]
     Active Substance: DEXAMETHASONE
     Indication: Prophylaxis
     Dosage: 9.9 MG
     Route: 042
     Dates: start: 20250627, end: 20250814
  9. FOSNETUPITANT CHLORIDE HYDROCHLORIDE [Concomitant]
     Active Substance: FOSNETUPITANT CHLORIDE HYDROCHLORIDE
     Indication: Prophylaxis
     Dosage: 235 MG
     Route: 042
     Dates: start: 20250627, end: 20250814
  10. POLARAMINE [Concomitant]
     Active Substance: DEXCHLORPHENIRAMINE MALEATE
     Indication: Prophylaxis
     Dosage: 5 MG
     Route: 042
     Dates: start: 20250627, end: 20250814
  11. OLANZAPINE [Concomitant]
     Active Substance: OLANZAPINE
     Indication: Prophylaxis
     Dosage: 5 MG
     Route: 048
     Dates: start: 20250627, end: 20250818
  12. DENOSUMAB [Concomitant]
     Active Substance: DENOSUMAB
     Indication: Prophylaxis
     Dosage: 120 MG
     Route: 042
     Dates: end: 20250724
  13. CALCIUM CARBONATE\CHOLECALCIFEROL\MAGNESIUM CARBONATE [Concomitant]
     Active Substance: CALCIUM CARBONATE\CHOLECALCIFEROL\MAGNESIUM CARBONATE
     Indication: Prophylaxis
     Dosage: 2 DOSAGE FORM
     Route: 048
     Dates: end: 20250828
  14. HEPARINOID [Concomitant]
     Indication: Disease complication
     Dosage: UNK
     Route: 065
     Dates: end: 20250902
  15. HEPARINOID [Concomitant]
     Dosage: UNK
     Route: 065
     Dates: end: 20250902
  16. DIFFERIN [Concomitant]
     Active Substance: ADAPALENE
     Indication: Disease complication
     Dosage: UNK
     Route: 065
     Dates: end: 20250902
  17. KETOPROFEN [Concomitant]
     Active Substance: KETOPROFEN
     Indication: Disease complication
     Dosage: UNK
     Route: 065
     Dates: end: 20250902
  18. LOXOPROFEN SODIUM [Concomitant]
     Active Substance: LOXOPROFEN SODIUM
     Indication: Disease complication
     Dosage: 180 MG
     Route: 048
     Dates: end: 20250902
  19. SULTANOL [Concomitant]
     Active Substance: ALBUTEROL SULFATE
     Indication: Disease complication
     Dosage: UNK
     Route: 055
     Dates: end: 20250828
  20. BETAMETHASONE DIPROPIONATE [Concomitant]
     Active Substance: BETAMETHASONE DIPROPIONATE
     Indication: Disease complication
     Dosage: UNK
     Route: 065
     Dates: end: 20250902
  21. OXYCODONE HYDROCHLORIDE [Concomitant]
     Active Substance: OXYCODONE HYDROCHLORIDE
     Indication: Disease complication
     Dosage: 2.5 MG
     Route: 048
     Dates: start: 20250717, end: 20250902
  22. OXYCODONE HYDROCHLORIDE [Concomitant]
     Active Substance: OXYCODONE HYDROCHLORIDE
     Indication: Disease complication
     Dosage: 10 MG
     Route: 048
     Dates: start: 20250830, end: 20250902
  23. ESOMEPRAZOLE MAGNESIUM [Concomitant]
     Active Substance: ESOMEPRAZOLE MAGNESIUM
     Indication: Prophylaxis
     Dosage: 20 MG
     Route: 048
     Dates: start: 20250717, end: 20250902
  24. LOPERAMIDE HYDROCHLORIDE [Concomitant]
     Active Substance: LOPERAMIDE HYDROCHLORIDE
     Indication: Disease complication
     Dosage: 2 MG
     Route: 048
     Dates: end: 20250702
  25. OXYCODONE HYDROCHLORIDE [Concomitant]
     Active Substance: OXYCODONE HYDROCHLORIDE
     Indication: Disease complication
     Dosage: 14 MG
     Route: 042
     Dates: start: 20250902, end: 20250902

REACTIONS (9)
  - Pyrexia [Recovered/Resolved]
  - Constipation [Recovered/Resolved]
  - Neutropenia [Recovered/Resolved]
  - White blood cell count decreased [Recovered/Resolved]
  - Abdominal distension [Not Recovered/Not Resolved]
  - Ascites [Unknown]
  - Malaise [Not Recovered/Not Resolved]
  - Hepatic function abnormal [Not Recovered/Not Resolved]
  - Decreased appetite [Not Recovered/Not Resolved]

NARRATIVE: CASE EVENT DATE: 20250703
